FAERS Safety Report 7628371-3 (Version None)
Quarter: 2011Q3

REPORT INFORMATION
  Report Type: 
  Country: None (occurrence: None)
  Receive Date: 20110722
  Receipt Date: 20110711
  Transmission Date: 20111222
  Serious: Yes (Hospitalization)
  Sender: FDA-Public Use
  Company Number: FR-JNJFOC-20100205353

PATIENT
  Age: 68 Year
  Sex: Female

DRUGS (2)
  1. REMICADE [Suspect]
     Route: 042
     Dates: start: 20090730
  2. REMICADE [Suspect]
     Indication: PSORIASIS
     Dosage: 4TH INFUSION
     Route: 042
     Dates: start: 20091105

REACTIONS (3)
  - INTERSTITIAL LUNG DISEASE [None]
  - ALVEOLITIS [None]
  - PLEURAL EFFUSION [None]
